FAERS Safety Report 8536731 (Version 2)
Quarter: 2012Q4

REPORT INFORMATION
  Report Type: Report from Study
  Country: TW (occurrence: TW)
  Receive Date: 20120430
  Receipt Date: 20121127
  Transmission Date: 20130627
  Serious: Yes (Hospitalization)
  Sender: FDA-Public Use
  Company Number: PHHY2012TW034537

PATIENT
  Age: 79 Year
  Sex: Female

DRUGS (1)
  1. VAA489A [Suspect]
     Indication: HYPERTENSION
     Dosage: 1 DF (vals 80 mg, amlo 05 mg),
     Route: 048
     Dates: start: 20111207

REACTIONS (8)
  - Thalamic infarction [Recovered/Resolved with Sequelae]
  - Central nervous system lesion [Recovered/Resolved with Sequelae]
  - Aortic arteriosclerosis [Recovered/Resolved with Sequelae]
  - Bronchitis chronic [Recovered/Resolved with Sequelae]
  - Bronchial wall thickening [Recovered/Resolved with Sequelae]
  - Pulmonary mass [Recovered/Resolved with Sequelae]
  - Nervous system disorder [Recovered/Resolved with Sequelae]
  - Dizziness [Recovered/Resolved with Sequelae]
